FAERS Safety Report 16618558 (Version 2)
Quarter: 2019Q3

REPORT INFORMATION
  Report Type: Spontaneous
  Country: PL (occurrence: PL)
  Receive Date: 20190723
  Receipt Date: 20190731
  Transmission Date: 20191004
  Serious: Yes (Other)
  Sender: FDA-Public Use
  Company Number: PL-JNJFOC-20190710576

PATIENT
  Age: 9 Month
  Sex: Male

DRUGS (4)
  1. CISPLATIN. [Suspect]
     Active Substance: CISPLATIN
     Indication: HEPATOBLASTOMA
  2. CAELYX [Suspect]
     Active Substance: DOXORUBICIN HYDROCHLORIDE
     Indication: HEPATOBLASTOMA
  3. CISPLATIN. [Suspect]
     Active Substance: CISPLATIN
     Indication: METASTASES TO LUNG
     Dosage: CYCLICAL
     Route: 065
  4. CAELYX [Suspect]
     Active Substance: DOXORUBICIN HYDROCHLORIDE
     Indication: METASTASES TO LUNG
     Route: 065

REACTIONS (5)
  - Leukopenia [Unknown]
  - Anaemia [Unknown]
  - Product use in unapproved indication [Unknown]
  - Deafness bilateral [Unknown]
  - Off label use [Unknown]
